FAERS Safety Report 8518018-6 (Version None)
Quarter: 2012Q3

REPORT INFORMATION
  Report Type: 
  Country: None (occurrence: None)
  Receive Date: 20120718
  Receipt Date: 20110804
  Transmission Date: 20120928
  Serious: No
  Sender: FDA-Public Use
  Company Number: US-BRISTOL-MYERS SQUIBB COMPANY-15947831

PATIENT
  Age: 80 Year
  Sex: Female

DRUGS (8)
  1. LIPITOR [Concomitant]
  2. ZETIA [Concomitant]
  3. HYDROCHLOROTHIAZIDE [Concomitant]
  4. GABAPENTIN [Concomitant]
  5. ASPIRIN [Concomitant]
  6. PREVACID [Concomitant]
  7. VALIUM [Concomitant]
  8. COUMADIN [Suspect]

REACTIONS (1)
  - MEDICATION ERROR [None]
